FAERS Safety Report 4347269-X (Version None)
Quarter: 2004Q1

REPORT INFORMATION
  Report Type: 
  Country: None (occurrence: None)
  Receive Date: 20040325
  Receipt Date: 20040211
  Transmission Date: 20041129
  Serious: No
  Sender: FDA-Public Use
  Company Number: USA031152322

PATIENT
  Age: 73 Year
  Sex: Female

DRUGS (6)
  1. FORTEO [Suspect]
     Dates: start: 20031009
  2. HYDROCORTISONE [Concomitant]
  3. SYNTHROID [Concomitant]
  4. FLORINEF [Concomitant]
  5. CALCIUM [Concomitant]
  6. VITAMIN D [Concomitant]

REACTIONS (5)
  - BACK PAIN [None]
  - BLOOD CALCIUM INCREASED [None]
  - INJECTION SITE HAEMORRHAGE [None]
  - INJECTION SITE PAIN [None]
  - SKIN DISCOLOURATION [None]
